FAERS Safety Report 9030781 (Version 3)
Quarter: 2013Q2

REPORT INFORMATION
  Report Type: Spontaneous
  Country: US (occurrence: US)
  Receive Date: 20130123
  Receipt Date: 20130401
  Transmission Date: 20140414
  Serious: Yes (Other)
  Sender: FDA-Public Use
  Company Number: PHEH2013US001849

PATIENT
  Age: 65 Year
  Sex: Female

DRUGS (8)
  1. RECLAST [Suspect]
     Indication: OSTEOPOROSIS
     Dosage: 5 MG, ONCE YEAR
     Route: 042
     Dates: start: 20120918
  2. ARIMIDEX [Concomitant]
     Dosage: 1 DF, DAILY
     Route: 048
  3. VITAMIN D [Concomitant]
     Dosage: 50000 IU, WEEKLY
     Route: 065
  4. CALCIUM [Concomitant]
     Dosage: UNK UKN, UNK
     Route: 065
  5. ASPIRIN [Concomitant]
     Dosage: 1 DF, DAILY
  6. ADVIL//IBUPROFEN [Concomitant]
     Dosage: UNK UKN, PRN
  7. MULTIPLE VITAMINS [Concomitant]
     Dosage: 1 DF, DAILY
     Route: 048
  8. OMEGA 3//FISH OIL [Concomitant]
     Dosage: 1 DF, DAILY
     Route: 048

REACTIONS (14)
  - Hand fracture [Unknown]
  - Comminuted fracture [Unknown]
  - Bone fragmentation [Unknown]
  - Hypoaesthesia [Unknown]
  - Paraesthesia [Unknown]
  - Local swelling [Unknown]
  - Tenderness [Unknown]
  - Pain in extremity [Unknown]
  - Inflammation [Unknown]
  - Laceration [Unknown]
  - Nail disorder [Unknown]
  - Ecchymosis [Unknown]
  - Joint stiffness [Unknown]
  - Blood pressure increased [Unknown]
